FAERS Safety Report 8194825-7 (Version None)
Quarter: 2012Q1

REPORT INFORMATION
  Report Type: 
  Country: None (occurrence: None)
  Receive Date: 20120308
  Receipt Date: 20110419
  Transmission Date: 20120608
  Serious: No
  Sender: FDA-Public Use
  Company Number: US-GLAXOSMITHKLINE-A0923555A

PATIENT
  Age: 79 Year
  Sex: Female

DRUGS (2)
  1. NICOTINE POLACRILEX [Suspect]
     Indication: EX-TOBACCO USER
     Dates: start: 20110401
  2. NICOTINE [Suspect]
     Indication: EX-TOBACCO USER

REACTIONS (4)
  - GINGIVAL PAIN [None]
  - OROPHARYNGEAL BLISTERING [None]
  - DRUG INEFFECTIVE [None]
  - GINGIVAL SWELLING [None]
